FAERS Safety Report 5566510-9 (Version None)
Quarter: 2007Q4

REPORT INFORMATION
  Report Type: 
  Country: None (occurrence: None)
  Receive Date: 20071219
  Receipt Date: 20071212
  Transmission Date: 20080405
  Serious: Yes (Death)
  Sender: FDA-Public Use
  Company Number: JP-ABBOTT-07P-087-0429634-00

PATIENT
  Sex: Male

DRUGS (3)
  1. RITONAVIR [Suspect]
     Indication: HIV INFECTION
     Route: 048
     Dates: start: 20070101, end: 20070101
  2. ABACAVIR W/LAMIVUDINE [Suspect]
     Indication: HIV INFECTION
     Route: 048
     Dates: start: 20070101, end: 20070101
  3. FOSAMPRENAVIR [Suspect]
     Indication: HIV INFECTION
     Route: 048
     Dates: start: 20070101, end: 20070101

REACTIONS (2)
  - AIDS ENCEPHALOPATHY [None]
  - PNEUMOCYSTIS JIROVECI PNEUMONIA [None]
